FAERS Safety Report 17628217 (Version 3)
Quarter: 2020Q3

REPORT INFORMATION
  Report Type: Report from Study
  Country: GB (occurrence: GB)
  Receive Date: 20200406
  Receipt Date: 20200803
  Transmission Date: 20201102
  Serious: Yes (Other)
  Sender: FDA-Public Use
  Company Number: GB-SAMSUNG BIOEPIS-SB-2020-11935

PATIENT
  Sex: Female

DRUGS (2)
  1. GOLIMUMAB [Concomitant]
     Active Substance: GOLIMUMAB
     Indication: PRODUCT USED FOR UNKNOWN INDICATION
     Dosage: UNKNOWN
     Route: 065
  2. IMRALDI [Suspect]
     Active Substance: ADALIMUMAB
     Indication: PSORIATIC ARTHROPATHY
     Route: 058
     Dates: start: 20200221, end: 20200306

REACTIONS (11)
  - Neoplasm [Unknown]
  - Injection site pain [Unknown]
  - Euphoric mood [Unknown]
  - Insomnia [Unknown]
  - Localised infection [Unknown]
  - Tooth infection [Unknown]
  - Injection site bruising [Unknown]
  - Postoperative wound complication [Not Recovered/Not Resolved]
  - Asthma [Unknown]
  - Myalgia [Unknown]
  - Bone pain [Unknown]
